FAERS Safety Report 8438151-7 (Version None)
Quarter: 2012Q2

REPORT INFORMATION
  Report Type: 
  Country: None (occurrence: None)
  Receive Date: 20120614
  Receipt Date: 20120614
  Transmission Date: 20120825
  Serious: Yes (Hospitalization)
  Sender: FDA-Public Use
  Company Number: IL-ROCHE-1054109

PATIENT
  Sex: Female
  Weight: 68 kg

DRUGS (13)
  1. ACTEMRA [Suspect]
     Route: 042
     Dates: start: 20120201, end: 20120201
  2. LEUCOVORIN CALCIUM [Concomitant]
  3. ACTEMRA [Suspect]
     Route: 042
     Dates: start: 20120104, end: 20120104
  4. SIMVASTATIN [Concomitant]
     Route: 048
  5. ACTEMRA [Suspect]
     Indication: RHEUMATOID ARTHRITIS
     Route: 042
     Dates: start: 20050629
  6. ASPIRIN [Concomitant]
     Route: 048
  7. OMEPRADEX [Concomitant]
  8. ACTEMRA [Suspect]
     Route: 042
     Dates: start: 20120523
  9. METHOTREXATE [Concomitant]
     Route: 048
  10. LOSARTAN POTASSIUM [Concomitant]
     Route: 048
  11. NIFEDIPINE [Concomitant]
  12. ACTEMRA [Suspect]
     Route: 042
     Dates: start: 20111207, end: 20111207
  13. ACTEMRA [Suspect]
     Route: 042
     Dates: start: 20120229, end: 20120229

REACTIONS (1)
  - ACUTE MYOCARDIAL INFARCTION [None]
